FAERS Safety Report 21373538 (Version 1)
Quarter: 2022Q3

REPORT INFORMATION
  Report Type: Spontaneous
  Country: None (occurrence: AU)
  Receive Date: 20220925
  Receipt Date: 20220925
  Transmission Date: 20221026
  Serious: Yes (Hospitalization, Other)
  Sender: FDA-Public Use
  Company Number: AU-Canton Laboratories, LLC-2133162

PATIENT
  Age: 48 Year
  Sex: Male

DRUGS (3)
  1. NAPROSYN [Suspect]
     Active Substance: NAPROXEN
  2. COMIRNATY [Suspect]
     Active Substance: TOZINAMERAN
     Dates: start: 20210917
  3. COMIRNATY [Suspect]
     Active Substance: TOZINAMERAN
     Dates: start: 20211008

REACTIONS (11)
  - Anaphylactic reaction [Recovered/Resolved]
  - Seizure [Recovered/Resolved]
  - Blood pressure difference of extremities [Not Recovered/Not Resolved]
  - Bursitis [Not Recovered/Not Resolved]
  - Neuralgia [Not Recovered/Not Resolved]
  - Pain in extremity [Not Recovered/Not Resolved]
  - Periarthritis [Unknown]
  - Spinal osteoarthritis [Unknown]
  - Cardiac disorder [Not Recovered/Not Resolved]
  - Hypertension [Not Recovered/Not Resolved]
  - Fatigue [Recovered/Resolved]
